FAERS Safety Report 19991151 (Version 1)
Quarter: 2021Q4

REPORT INFORMATION
  Report Type: Spontaneous
  Country: US (occurrence: US)
  Receive Date: 20211025
  Receipt Date: 20211025
  Transmission Date: 20220303
  Serious: No
  Sender: FDA-Public Use
  Company Number: US-GLAXOSMITHKLINE-US2021AMR215145

PATIENT
  Age: 42 Year
  Sex: Female

DRUGS (1)
  1. ALBUTEROL SULFATE [Suspect]
     Active Substance: ALBUTEROL SULFATE
     Indication: Product used for unknown indication
     Dosage: UNK, 90 MCG, 18G/200 METERED
     Dates: start: 20211011

REACTIONS (8)
  - Oral mucosal eruption [Unknown]
  - Tongue eruption [Unknown]
  - Swelling of eyelid [Not Recovered/Not Resolved]
  - Lip swelling [Unknown]
  - Oropharyngeal pain [Unknown]
  - Hypersensitivity [Unknown]
  - Cheilitis [Unknown]
  - Hypoaesthesia oral [Unknown]

NARRATIVE: CASE EVENT DATE: 20211014
